FAERS Safety Report 8611034-5 (Version None)
Quarter: 2012Q3

REPORT INFORMATION
  Report Type: 
  Country: None (occurrence: None)
  Receive Date: 20120822
  Receipt Date: 20120816
  Transmission Date: 20120928
  Serious: Yes (Other)
  Sender: FDA-Public Use
  Company Number: BR-PFIZER INC-2012201766

PATIENT
  Age: 69 Year
  Sex: Female

DRUGS (8)
  1. VIAGRA [Suspect]
     Indication: CARDIAC DISORDER
     Dosage: 50 MG, 1X/DAY
  2. VITALUX PLUS [Concomitant]
     Indication: MACULAR DEGENERATION
     Dosage: 1 TABLET, DAILY
     Dates: start: 20070101
  3. DICLOFENAC SODIUM [Concomitant]
     Indication: PAIN
     Dosage: 1 TO 3 TABLETS, DAILY
     Dates: start: 20100101
  4. DALMADORM ^ICN^ [Concomitant]
     Indication: SLEEP DISORDER
     Dosage: 1 TABLET, 1X/DAY (AT NIGHT)
     Dates: start: 20040101
  5. ALDACTONE [Concomitant]
     Indication: HYPERTENSION
     Dosage: 1 TABLET, DAILY
     Dates: start: 19970101
  6. ATACAND [Concomitant]
     Indication: HYPERTENSION
     Dosage: 1 TABLET, DAILY
     Dates: start: 19970101
  7. LEVOTHYROXINE SODIUM [Concomitant]
     Indication: HYPOTHYROIDISM
     Dosage: 1 TABLET, DAILY
     Dates: start: 19920101
  8. CYMBALTA [Concomitant]
     Indication: ANTIDEPRESSANT THERAPY
     Dosage: 1 TABLET, DAILY
     Dates: start: 20100101

REACTIONS (5)
  - LUMBAR VERTEBRAL FRACTURE [None]
  - CERVICAL MYELOPATHY [None]
  - OFF LABEL USE [None]
  - FALL [None]
  - FRACTURE [None]
